FAERS Safety Report 5034160-9 (Version None)
Quarter: 2006Q2

REPORT INFORMATION
  Report Type: 
  Country: None (occurrence: None)
  Receive Date: 20060621
  Receipt Date: 20060601
  Transmission Date: 20061013
  Serious: Yes (Death)
  Sender: FDA-Public Use
  Company Number: US200606000689

PATIENT
  Age: 94 Year
  Sex: Female

DRUGS (6)
  1. ZYPREXA [Suspect]
     Indication: PSYCHOTIC DISORDER
     Dosage: SEE IMAGE
     Dates: start: 20000401
  2. CELEXA [Concomitant]
  3. RANITIDINE [Concomitant]
  4. ACETAMINOPHEN [Concomitant]
  5. SCOPOLAMINE HYDROBROMIDE (SCOPOLAMINE HYDROBROMIDE) [Concomitant]
  6. . [Concomitant]

REACTIONS (8)
  - CATHETER RELATED INFECTION [None]
  - HALLUCINATION [None]
  - HOSTILITY [None]
  - HYPOKINESIA [None]
  - LOSS OF CONSCIOUSNESS [None]
  - PNEUMONIA ASPIRATION [None]
  - SEPSIS [None]
  - TRANSIENT ISCHAEMIC ATTACK [None]
